FAERS Safety Report 7532593-X (Version None)
Quarter: 2011Q2

REPORT INFORMATION
  Report Type: 
  Country: None (occurrence: None)
  Receive Date: 20110608
  Receipt Date: 20110531
  Transmission Date: 20111010
  Serious: Yes (Hospitalization, Other)
  Sender: FDA-Public Use
  Company Number: PHHO2010US13825

PATIENT
  Sex: Female
  Weight: 50.34 kg

DRUGS (4)
  1. IMATINIB MESYLATE [Suspect]
     Indication: PULMONARY ARTERIAL HYPERTENSION
     Dosage: BLINDED
     Route: 048
     Dates: start: 20100722, end: 20100904
  2. DIGOXIN [Concomitant]
     Indication: ATRIAL FLUTTER
  3. OXYGEN [Concomitant]
     Indication: HAEMATOMA
  4. DILTIAZEM [Concomitant]
     Indication: ATRIAL FLUTTER

REACTIONS (5)
  - FATIGUE [None]
  - PNEUMOTHORAX [None]
  - ATELECTASIS [None]
  - DYSPNOEA [None]
  - PLEURAL EFFUSION [None]
